FAERS Safety Report 20833906 (Version 2)
Quarter: 2022Q2

REPORT INFORMATION
  Report Type: Spontaneous
  Country: BR (occurrence: BR)
  Receive Date: 20220516
  Receipt Date: 20220618
  Transmission Date: 20220721
  Serious: Yes (Other)
  Sender: FDA-Public Use
  Company Number: BR-Accord-263378

PATIENT
  Age: 51 Year
  Sex: Female
  Weight: 56.3 kg

DRUGS (12)
  1. PACLITAXEL [Suspect]
     Active Substance: PACLITAXEL
     Indication: Gastric cancer
     Dosage: FREQUENCY OF 4 CYCLES WITH AN INTERVAL OF 21 DAYS
     Route: 042
     Dates: start: 20220325, end: 20220401
  2. LOSARTAN [Concomitant]
     Active Substance: LOSARTAN
     Indication: Hypertension
  3. ASPIRIN [Concomitant]
     Active Substance: ASPIRIN
  4. SIMVASTATIN [Concomitant]
     Active Substance: SIMVASTATIN
  5. OMEPRAZOLE [Concomitant]
     Active Substance: OMEPRAZOLE
  6. DOMPERIDONE [Concomitant]
     Active Substance: DOMPERIDONE
  7. METOCLOPRAMIDE HYDROCHLORIDE [Concomitant]
     Active Substance: METOCLOPRAMIDE HYDROCHLORIDE
  8. SALINE [Concomitant]
     Active Substance: SODIUM CHLORIDE
     Dosage: STRENGTH: 0.9%
  9. ONDANSETRON [Concomitant]
     Active Substance: ONDANSETRON
  10. DEXAMETHASONE [Concomitant]
     Active Substance: DEXAMETHASONE
  11. DEXCHLORPHENIRAMINE MALEATE [Concomitant]
     Active Substance: DEXCHLORPHENIRAMINE MALEATE
  12. CIMETIDINE [Concomitant]
     Active Substance: CIMETIDINE

REACTIONS (3)
  - Hypoxia [Recovered/Resolved]
  - Dyspnoea [Recovered/Resolved]
  - Dizziness [Recovered/Resolved]

NARRATIVE: CASE EVENT DATE: 20220401
